FAERS Safety Report 24377897 (Version 1)
Quarter: 2024Q3

REPORT INFORMATION
  Report Type: Spontaneous
  Country: US (occurrence: None)
  Receive Date: 20240927
  Receipt Date: 20240927
  Transmission Date: 20241016
  Serious: Yes (unspecified)
  Sender: Public
  Company Number: None

PATIENT
  Age: 37 Year
  Sex: Female

DRUGS (1)
  1. XELJANZ XR [Suspect]
     Active Substance: TOFACITINIB CITRATE
     Dosage: FREQUENCY : DAILY;?

REACTIONS (13)
  - Headache [None]
  - Insomnia [None]
  - Somnolence [None]
  - Respiratory tract congestion [None]
  - Cough [None]
  - Attention deficit hyperactivity disorder [None]
  - Contusion [None]
  - Heart rate increased [None]
  - Arthralgia [None]
  - Vomiting [None]
  - Dyspepsia [None]
  - Psoriatic arthropathy [None]
  - Intentional dose omission [None]
